FAERS Safety Report 20033446 (Version 1)
Quarter: 2021Q4

REPORT INFORMATION
  Report Type: Spontaneous
  Country: US (occurrence: US)
  Receive Date: 20211104
  Receipt Date: 20211104
  Transmission Date: 20220303
  Serious: Yes (Other)
  Sender: FDA-Public Use
  Company Number: US-ALLERGAN-2136937US

PATIENT
  Sex: Female

DRUGS (2)
  1. VRAYLAR [Suspect]
     Active Substance: CARIPRAZINE
     Indication: Product used for unknown indication
     Dosage: 6 MG
  2. XANAX [Concomitant]
     Active Substance: ALPRAZOLAM
     Dosage: LOW DOSE

REACTIONS (2)
  - Accident [Unknown]
  - Generalised tonic-clonic seizure [Unknown]
